FAERS Safety Report 4701810-3 (Version None)
Quarter: 2005Q2

REPORT INFORMATION
  Report Type: 
  Country: None (occurrence: None)
  Receive Date: 20050627
  Receipt Date: 20050617
  Transmission Date: 20051028
  Serious: Yes (Other)
  Sender: FDA-Public Use
  Company Number: 2005-06-1361

PATIENT
  Age: 49 Year
  Sex: Female
  Weight: 70.7611 kg

DRUGS (9)
  1. PEG-INTRON [Suspect]
     Indication: HEPATITIS C
     Dates: start: 20040727, end: 20050607
  2. REBETOL [Suspect]
     Indication: HEPATITIS C
     Dosage: ORAL
     Route: 048
     Dates: start: 20040727, end: 20050607
  3. DRISTAN NASAL SPRAY NASAL SOLUTION 0.5-0.2% NAS ASER SPRAY [Concomitant]
  4. IBUPROFEN TABLETS 200 MG ORAL [Concomitant]
  5. KLONOPIN TABLETS 0.5 MG ORAL [Concomitant]
  6. SOMA TABLETS 350 MG ORAL [Concomitant]
  7. MORPHINE DISCONTINUED FOR BACK PAIN [Concomitant]
  8. FENTANYL TRANSDERMAL FOR BACK PAIN [Concomitant]
  9. TRAZODONE FOR DEPRESSION [Concomitant]

REACTIONS (16)
  - ASTHENIA [None]
  - BACK PAIN [None]
  - BONE PAIN [None]
  - CEREBROVASCULAR ACCIDENT [None]
  - COORDINATION ABNORMAL [None]
  - DEHYDRATION [None]
  - DEPRESSION [None]
  - DIARRHOEA [None]
  - FEELING ABNORMAL [None]
  - LOSS OF CONSCIOUSNESS [None]
  - MULTIPLE SCLEROSIS [None]
  - MUSCLE DISORDER [None]
  - MUSCULAR WEAKNESS [None]
  - NAUSEA [None]
  - VOMITING [None]
  - WEIGHT DECREASED [None]
